FAERS Safety Report 5011694-4 (Version None)
Quarter: 2006Q2

REPORT INFORMATION
  Report Type: 
  Country: None (occurrence: None)
  Receive Date: 20060526
  Receipt Date: 20060515
  Transmission Date: 20061013
  Serious: Yes (Other)
  Sender: FDA-Public Use
  Company Number: GBWYE626015MAY06

PATIENT
  Sex: Female

DRUGS (6)
  1. ENBREL [Suspect]
     Indication: RHEUMATOID ARTHRITIS
     Route: 058
     Dates: start: 20030801, end: 20060401
  2. ENBREL [Suspect]
     Dosage: 3 DOSES
     Route: 030
     Dates: start: 20060501
  3. ARTHROTEC [Concomitant]
     Indication: MULTIPLE SCLEROSIS
     Dosage: UNKNOWN
     Route: 065
  4. PREDNISOLONE [Concomitant]
     Indication: MULTIPLE SCLEROSIS
     Dosage: UNKNOWN
     Route: 065
  5. DIHYDROCODEINE [Concomitant]
     Indication: MULTIPLE SCLEROSIS
     Dosage: UNKNOWN
     Route: 065
  6. PARACETAMOL [Concomitant]
     Indication: MULTIPLE SCLEROSIS
     Dosage: UNKNOWN
     Route: 065

REACTIONS (2)
  - SURGERY [None]
  - THROMBOSIS [None]
